FAERS Safety Report 20474008 (Version 1)
Quarter: 2022Q1

REPORT INFORMATION
  Report Type: Spontaneous
  Country: GB (occurrence: GB)
  Receive Date: 20220215
  Receipt Date: 20220215
  Transmission Date: 20220423
  Serious: Yes (Hospitalization)
  Sender: FDA-Public Use
  Company Number: GB-ADVANZ PHARMA-202201000779

PATIENT

DRUGS (5)
  1. PREDNISOLONE [Suspect]
     Active Substance: PREDNISOLONE
     Indication: Giant cell arteritis
     Dosage: 60 MG, QD
     Route: 048
  2. PREDNISOLONE [Suspect]
     Active Substance: PREDNISOLONE
     Dosage: 30 MG, QD
     Route: 048
  3. PREDNISOLONE [Suspect]
     Active Substance: PREDNISOLONE
     Dosage: UNK (SLOW TAPPERING DOSES)
     Route: 048
  4. DEMECLOCYCLINE [Concomitant]
     Active Substance: DEMECLOCYCLINE
     Dosage: UNK
  5. SALINE [Concomitant]
     Active Substance: SODIUM CHLORIDE
     Dosage: UNK HYPERTONIC SALINE

REACTIONS (1)
  - Confusional state [Recovering/Resolving]
